FAERS Safety Report 9614017 (Version 3)
Quarter: 2014Q2

REPORT INFORMATION
  Report Type: Report from Study
  Country: CA (occurrence: CA)
  Receive Date: 20131011
  Receipt Date: 20140610
  Transmission Date: 20141212
  Serious: Yes (Other)
  Sender: FDA-Public Use
  Company Number: CA-ROCHE-1113369

PATIENT
  Age: 70 Year
  Sex: Female

DRUGS (6)
  1. VEMURAFENIB [Suspect]
     Indication: METASTATIC MALIGNANT MELANOMA
     Route: 048
     Dates: start: 201208
  2. VEMURAFENIB [Suspect]
     Route: 048
     Dates: start: 201209, end: 2014
  3. RANITIDINE [Concomitant]
     Route: 048
  4. SYNTHROID [Concomitant]
     Indication: HYPOTHYROIDISM
     Route: 048
  5. FERROUS SULFATE [Concomitant]
     Indication: BLOOD IRON DECREASED
  6. OMEGA 3-6-9 [Concomitant]

REACTIONS (3)
  - Pain [Recovering/Resolving]
  - Nausea [Not Recovered/Not Resolved]
  - Hypersomnia [Unknown]
